FAERS Safety Report 9182730 (Version 1)
Quarter: 2012Q4

REPORT INFORMATION
  Report Type: 
  Country: US (occurrence: US)
  Receive Date: 20121031
  Receipt Date: 20121031
  Transmission Date: 20130627
  Serious: Yes (Hospitalization)
  Sender: FDA-Public Use
  Company Number: US-B.I. PHARMACEUTICALS,INC./RIDGEFIELD-2012-BP-26712BP

PATIENT
  Sex: Female
  Weight: 56 kg

DRUGS (20)
  1. SPIRIVA [Suspect]
     Indication: CHRONIC OBSTRUCTIVE PULMONARY DISEASE
     Dosage: 18 mcg
     Route: 055
     Dates: start: 2002
  2. SIMVASTATIN [Concomitant]
     Indication: BLOOD CHOLESTEROL INCREASED
     Dosage: 20 mg
     Route: 048
  3. SINGULAIR [Concomitant]
     Indication: HYPERSENSITIVITY
     Dosage: 20 mg
     Route: 048
     Dates: start: 1992
  4. ALPRAZOLAM [Concomitant]
     Indication: ANXIETY
     Dosage: 0.5 mg
     Route: 048
     Dates: start: 1982
  5. MONTELUKAST [Concomitant]
     Indication: HYPERSENSITIVITY
     Dosage: 10 mg
     Route: 048
     Dates: start: 1992
  6. ADVAIR [Concomitant]
     Indication: CHRONIC OBSTRUCTIVE PULMONARY DISEASE
     Dosage: 2 puf
     Route: 055
     Dates: start: 2002
  7. NASONEX [Concomitant]
     Indication: CHRONIC OBSTRUCTIVE PULMONARY DISEASE
     Route: 045
     Dates: start: 2002
  8. GLINPETRIDE [Concomitant]
     Indication: DIABETES MELLITUS
     Route: 048
  9. SYNTHROID [Concomitant]
     Indication: HYPOTHYROIDISM
     Dosage: 0.125 mg
     Route: 048
     Dates: start: 1988
  10. OMEPRAZOLE [Concomitant]
     Indication: DYSPEPSIA
     Dosage: 40 mg
     Route: 048
     Dates: start: 1997
  11. METHANAMINE [Concomitant]
     Indication: RENAL DISORDER
     Dosage: 1 g
     Route: 048
     Dates: start: 2010
  12. XOPENEX [Concomitant]
     Indication: CHRONIC OBSTRUCTIVE PULMONARY DISEASE
     Dosage: 4 puf
     Route: 055
     Dates: start: 2002
  13. AMIODARONE [Concomitant]
     Indication: CARDIAC DISORDER
     Dosage: 100 mg
     Route: 048
     Dates: start: 201206
  14. WALFED ALLERGY [Concomitant]
     Indication: HYPERSENSITIVITY
     Dosage: 180 mg
     Route: 048
     Dates: start: 1995
  15. CRANBERRY TRIPLE STRENGTH WITH VITAMIN C [Concomitant]
     Indication: RENAL DISORDER
     Route: 048
     Dates: start: 2010
  16. VITAMIN B 100 COMPLEX [Concomitant]
     Indication: SUPPLEMENTATION THERAPY
     Route: 048
     Dates: start: 2010
  17. XOPENEX SOLUTION [Concomitant]
     Indication: CHRONIC OBSTRUCTIVE PULMONARY DISEASE
     Route: 055
     Dates: start: 2002
  18. METFORMIN [Concomitant]
     Indication: DIABETES MELLITUS
     Dosage: 1000 mg
     Route: 048
     Dates: start: 2001
  19. EQUATE [Concomitant]
     Indication: PAIN
     Dosage: 500 mg
     Route: 048
     Dates: start: 2010
  20. TRAMADOL [Concomitant]
     Indication: PAIN
     Dates: start: 201208

REACTIONS (10)
  - Adrenal mass [Recovered/Resolved]
  - Ear operation [Unknown]
  - Ear operation [Unknown]
  - Pneumonia [Recovered/Resolved]
  - Heart rate increased [Unknown]
  - Fall [Recovered/Resolved]
  - Rib fracture [Unknown]
  - Spinal fracture [Unknown]
  - Arthritis [Unknown]
  - Weight decreased [Unknown]
